FAERS Safety Report 11145133 (Version 1)
Quarter: 2015Q2

REPORT INFORMATION
  Report Type: Spontaneous
  Country: US (occurrence: None)
  Receive Date: 20150526
  Receipt Date: 20150526
  Transmission Date: 20150821
  Serious: Yes (Hospitalization)
  Sender: FDA-Public Use
  Company Number: US-ZYDUS-008090

PATIENT
  Age: 39 Year
  Sex: Male

DRUGS (2)
  1. QUETIAPINE (QUETIPAINE) [Suspect]
     Active Substance: QUETIAPINE
  2. VALPROIC ACID (VALPROIC ACID) [Suspect]
     Active Substance: VALPROIC ACID

REACTIONS (10)
  - Metabolic syndrome [None]
  - Blood sodium decreased [None]
  - Mania [None]
  - Hyporesponsive to stimuli [None]
  - Acute prerenal failure [None]
  - Diabetes mellitus [None]
  - Drug interaction [None]
  - Acidosis [None]
  - Treatment noncompliance [None]
  - Hyperlipidaemia [None]
